FAERS Safety Report 14914968 (Version 1)
Quarter: 2018Q2

REPORT INFORMATION
  Report Type: Spontaneous
  Country: US (occurrence: US)
  Receive Date: 20180501
  Receipt Date: 20180501
  Transmission Date: 20180711
  Serious: Yes (Disabling)
  Sender: FDA-Public Use
  Company Number: None

PATIENT
  Age: 50 Year
  Sex: Female
  Weight: 54 kg

DRUGS (1)
  1. DYSPORT [Suspect]
     Active Substance: ABOBOTULINUMTOXINA
     Indication: SKIN WRINKLING
     Route: 030
     Dates: start: 20180411, end: 20180411

REACTIONS (6)
  - Eyelid ptosis [None]
  - Vision blurred [None]
  - Impaired driving ability [None]
  - Impaired work ability [None]
  - Diplopia [None]
  - Hypoaesthesia oral [None]

NARRATIVE: CASE EVENT DATE: 20180423
